FAERS Safety Report 5849841-4 (Version None)
Quarter: 2008Q3

REPORT INFORMATION
  Report Type: 
  Country: None (occurrence: None)
  Receive Date: 20080818
  Receipt Date: 20080818
  Transmission Date: 20090109
  Serious: No
  Sender: FDA-Public Use
  Company Number: None

PATIENT
  Sex: Male
  Weight: 64 kg

DRUGS (1)
  1. AMICAR [Suspect]
     Indication: FACTOR VII DEFICIENCY
     Dosage: 4 GM Q6H -PREOP- PO, ONE DOSE
     Route: 048

REACTIONS (3)
  - HEART RATE IRREGULAR [None]
  - SYNCOPE [None]
  - TINNITUS [None]
